FAERS Safety Report 6927199-7 (Version None)
Quarter: 2010Q3

REPORT INFORMATION
  Report Type: 
  Country: None (occurrence: None)
  Receive Date: 20100816
  Receipt Date: 20100810
  Transmission Date: 20110219
  Serious: Yes (Death, Hospitalization, Other)
  Sender: FDA-Public Use
  Company Number: US-ELI_LILLY_AND_COMPANY-US201003008482

PATIENT
  Sex: Female
  Weight: 58.5 kg

DRUGS (11)
  1. GEMZAR [Suspect]
     Indication: PANCREATIC CARCINOMA METASTATIC
     Dosage: UNK, UNK
     Dates: start: 20080902, end: 20091221
  2. ERBITUX [Concomitant]
     Indication: PANCREATIC CARCINOMA METASTATIC
  3. ATENOLOL [Concomitant]
     Dosage: 50 MG, UNK
     Route: 048
  4. CLINDAMYCIN [Concomitant]
     Indication: RASH
     Dosage: 30 G, AS NEEDED
  5. CREON [Concomitant]
     Dosage: UNK, OTHER
     Route: 048
  6. DARVON-N [Concomitant]
     Indication: INSOMNIA
     Dosage: UNK, EACH EVENING
     Route: 048
  7. HYDROCODONE BITARTRATE AND ACETAMINOPHEN [Concomitant]
     Indication: PAIN
     Dosage: 7.5 MG, OTHER
     Route: 048
  8. LANTUS [Concomitant]
     Dosage: 48 U, EACH EVENING
     Route: 058
  9. LASIX [Concomitant]
     Indication: OEDEMA PERIPHERAL
     Dosage: 60 MG, AS NEEDED
     Route: 048
  10. NOVOLOG [Concomitant]
     Dosage: UNK, OTHER
     Route: 058
  11. PHENERGAN [Concomitant]
     Indication: NAUSEA
     Dosage: 25 MG, AS NEEDED
     Route: 048

REACTIONS (5)
  - BLOOD SODIUM DECREASED [None]
  - HAEMATOCRIT DECREASED [None]
  - HAEMOGLOBIN DECREASED [None]
  - MALIGNANT NEOPLASM PROGRESSION [None]
  - PLATELET COUNT DECREASED [None]
